FAERS Safety Report 15037351 (Version 3)
Quarter: 2023Q4

REPORT INFORMATION
  Report Type: Spontaneous
  Country: PL (occurrence: PL)
  Receive Date: 20180620
  Receipt Date: 20231017
  Transmission Date: 20240110
  Serious: Yes (Death, Hospitalization, Other)
  Sender: FDA-Public Use
  Company Number: PL-ROCHE-2122999

PATIENT
  Sex: Female

DRUGS (3)
  1. CARBOPLATIN [Suspect]
     Active Substance: CARBOPLATIN
     Indication: Ovarian cancer
     Dosage: UNK
     Route: 065
     Dates: start: 2016
  2. PACLITAXEL [Suspect]
     Active Substance: PACLITAXEL
     Indication: Ovarian cancer
     Dosage: UNK
     Route: 065
     Dates: start: 2016
  3. AVASTIN [Suspect]
     Active Substance: BEVACIZUMAB
     Indication: Ovarian cancer
     Dosage: UNK
     Route: 065
     Dates: start: 2016

REACTIONS (9)
  - Death [Fatal]
  - Enterococcal infection [Recovered/Resolved]
  - Escherichia infection [Recovered/Resolved]
  - Impaired healing [Recovered/Resolved]
  - Pseudomonas infection [Recovered/Resolved]
  - Pelvic abscess [Unknown]
  - Large intestine perforation [Unknown]
  - General physical health deterioration [Unknown]
  - Neoplasm progression [Unknown]

NARRATIVE: CASE EVENT DATE: 20160101
